FAERS Safety Report 4992147-6 (Version None)
Quarter: 2006Q2

REPORT INFORMATION
  Report Type: 
  Country: None (occurrence: None)
  Receive Date: 20060504
  Receipt Date: 20060502
  Transmission Date: 20061013
  Serious: Yes (Death)
  Sender: FDA-Public Use
  Company Number: US-JNJFOC-20060304304

PATIENT
  Age: 77 Year
  Sex: Male
  Weight: 83.92 kg

DRUGS (1)
  1. PANCREASE [Suspect]
     Indication: PANCREATIC INSUFFICIENCY

REACTIONS (1)
  - DEATH [None]
